FAERS Safety Report 20223826 (Version 1)
Quarter: 2021Q4

REPORT INFORMATION
  Report Type: Spontaneous
  Country: US (occurrence: None)
  Receive Date: 20211223
  Receipt Date: 20211223
  Transmission Date: 20220303
  Serious: No
  Sender: FDA-Public Use
  Company Number: None

PATIENT
  Age: 71 Year
  Sex: Female

DRUGS (1)
  1. ORLADEYO [Suspect]
     Active Substance: BEROTRALSTAT HYDROCHLORIDE
     Indication: Hereditary angioedema
     Dates: end: 20210801

REACTIONS (3)
  - Therapy cessation [None]
  - Liver disorder [None]
  - Biliary tract disorder [None]

NARRATIVE: CASE EVENT DATE: 20210701
